FAERS Safety Report 4740312-5 (Version None)
Quarter: 2005Q3

REPORT INFORMATION
  Report Type: 
  Country: None (occurrence: None)
  Receive Date: 20050729
  Receipt Date: 20050523
  Transmission Date: 20060218
  Serious: No
  Sender: FDA-Public Use
  Company Number: RB-1685-2005

PATIENT
  Age: 25 Year
  Sex: Male
  Weight: 117.9352 kg

DRUGS (3)
  1. SUBOXONE [Suspect]
     Indication: DEPENDENCE
     Dosage: 4 MG DAILY SL
     Dates: start: 20050520
  2. VITAMINS [Concomitant]
  3. MILK THISTLE [Concomitant]

REACTIONS (3)
  - BLISTER [None]
  - OEDEMA PERIPHERAL [None]
  - PRURITUS [None]
